FAERS Safety Report 17442168 (Version 1)
Quarter: 2020Q1

REPORT INFORMATION
  Report Type: Spontaneous
  Country: US (occurrence: US)
  Receive Date: 20200220
  Receipt Date: 20200220
  Transmission Date: 20200409
  Serious: Yes (Hospitalization)
  Sender: FDA-Public Use
  Company Number: US-JNJFOC-20200224604

PATIENT
  Sex: Female

DRUGS (1)
  1. INVEGA SUSTENNA [Suspect]
     Active Substance: PALIPERIDONE PALMITATE
     Indication: SCHIZOPHRENIA
     Dosage: ONCE, 2ND INITIATION DOSE
     Route: 030

REACTIONS (2)
  - Hospitalisation [Unknown]
  - Product dose omission [Unknown]

NARRATIVE: CASE EVENT DATE: 20200213
